FAERS Safety Report 4645404-7 (Version None)
Quarter: 2005Q2

REPORT INFORMATION
  Report Type: 
  Country: None (occurrence: None)
  Receive Date: 20050425
  Receipt Date: 20050412
  Transmission Date: 20051028
  Serious: Yes (Hospitalization)
  Sender: FDA-Public Use
  Company Number: 2005059231

PATIENT
  Age: 79 Year
  Sex: Male

DRUGS (11)
  1. ZITHROMAX [Suspect]
     Indication: NASOPHARYNGITIS
     Dosage: 500 MG , ORAL
     Route: 048
     Dates: start: 20040408, end: 20040408
  2. LEVOFLOXACIN [Concomitant]
  3. ALL OTHER THERAPEUTIC PRODUCTS (ALL OTHER THERAPEUTIC PRODUCTS) [Concomitant]
  4. DIMEMORFAN PHOSPHATE (DIMEMORFAN PHOSPHATE0 [Concomitant]
  5. CARBOCISTEINE (CARBOCISTEINE0 [Concomitant]
  6. SERRAPEPTASE (SERRAPETASE) [Concomitant]
  7. CLOTIAZEPAM (CLOTIAZEPAM) [Concomitant]
  8. TAMSULOSIN HYDROCHLORIDE (TAMSULOSIN HYDROCHLORIDE) [Concomitant]
  9. TEPRENONE (TEPRENONE) [Concomitant]
  10. SODIUM GUALENATE (SOLDIUM GUALENATE) [Concomitant]
  11. TIAPROFENIC ACID (TIAPROFENIC ACID) [Concomitant]

REACTIONS (4)
  - ASTHENIA [None]
  - BLOOD CREATINE PHOSPHOKINASE INCREASED [None]
  - GAIT DISTURBANCE [None]
  - LIVER FUNCTION TEST ABNORMAL [None]
